FAERS Safety Report 14163876 (Version 2)
Quarter: 2018Q4

REPORT INFORMATION
  Report Type: Spontaneous
  Country: JP (occurrence: JP)
  Receive Date: 20171106
  Receipt Date: 20181203
  Transmission Date: 20190204
  Serious: Yes (Death, Life-Threatening)
  Sender: FDA-Public Use
  Company Number: JP-BAUSCH-BL-2017-030562

PATIENT
  Age: 69 Year
  Sex: Male
  Weight: 58 kg

DRUGS (7)
  1. TALION (BEPOTASTINE BESILATE) [Suspect]
     Active Substance: BEPOTASTINE BESILATE
     Indication: PRURITUS
     Route: 048
     Dates: start: 20170812, end: 20170906
  2. DIACORT [Concomitant]
     Active Substance: DIFLORASONE DIACETATE
     Indication: PRODUCT USED FOR UNKNOWN INDICATION
     Route: 061
     Dates: start: 20170812
  3. ACETYLOL [Concomitant]
     Indication: PRODUCT USED FOR UNKNOWN INDICATION
     Route: 061
     Dates: start: 20170812
  4. TALION (BEPOTASTINE BESILATE) [Suspect]
     Active Substance: BEPOTASTINE BESILATE
     Route: 048
     Dates: start: 20170908, end: 20170909
  5. OLOPATADINE HYDROCHLORIDE. [Concomitant]
     Active Substance: OLOPATADINE HYDROCHLORIDE
     Indication: PRODUCT USED FOR UNKNOWN INDICATION
     Route: 048
     Dates: start: 20170801
  6. ATARAX-P [Concomitant]
     Active Substance: HYDROXYZINE HYDROCHLORIDE
     Route: 048
     Dates: start: 20170908, end: 20170909
  7. ATARAX-P [Concomitant]
     Active Substance: HYDROXYZINE HYDROCHLORIDE
     Indication: PRURITUS
     Route: 048
     Dates: start: 20170812, end: 20170906

REACTIONS (1)
  - Hepatic function abnormal [Fatal]

NARRATIVE: CASE EVENT DATE: 20170906
